FAERS Safety Report 6571638-0 (Version None)
Quarter: 2010Q1

REPORT INFORMATION
  Report Type: 
  Country: None (occurrence: None)
  Receive Date: 20100205
  Receipt Date: 20100125
  Transmission Date: 20100710
  Serious: Yes (Hospitalization, Other)
  Sender: FDA-Public Use
  Company Number: PHEH2009US02702

PATIENT
  Sex: Female
  Weight: 62.27 kg

DRUGS (13)
  1. COMBIPATCH [Suspect]
     Indication: HORMONE REPLACEMENT THERAPY
     Dosage: UNK
     Route: 062
  2. PREMPRO [Suspect]
     Indication: HORMONE REPLACEMENT THERAPY
     Dosage: UNK, UNK
  3. ACTIVELLA [Suspect]
     Indication: HORMONE REPLACEMENT THERAPY
     Dosage: UNK, UNK
  4. LANOXIN [Concomitant]
     Dosage: .25 MG DAILY
  5. LOPRESSOR [Concomitant]
     Dosage: 25 MG DAILY
  6. DYAZIDE [Concomitant]
     Dosage: 37.5/25 DAILY
  7. NIFEREX (POLYSACCHARIDE-IRON COMPLEX) [Concomitant]
     Dosage: 1 TAB DAILY
  8. COUMADIN [Concomitant]
     Dosage: 5 MG/2.5 MG ALTERNATING
  9. OXYGEN THERAPY [Concomitant]
     Dosage: 2 LITERS/NASAL CANNULA
  10. METOPROLOL TARTRATE [Concomitant]
     Dosage: 50 MG 1 BY MOUTH DAILY
  11. PAXIL [Concomitant]
     Dosage: 25 MG 1 BY MOUTH DAILY
  12. WELLBUTRIN SR [Concomitant]
     Dosage: 15O MG BY MOUTH DAILY
  13. SPIRONOLACTONE [Concomitant]
     Dosage: 25 MG 1/2 BY MOUTH DAILY

REACTIONS (6)
  - BREAST CANCER [None]
  - CARDIAC FAILURE CONGESTIVE [None]
  - CHRONIC OBSTRUCTIVE PULMONARY DISEASE [None]
  - COLONIC POLYP [None]
  - PRESYNCOPE [None]
  - SURGERY [None]
